FAERS Safety Report 6233285-X (Version None)
Quarter: 2009Q2

REPORT INFORMATION
  Report Type: 
  Country: None (occurrence: None)
  Receive Date: 20090617
  Receipt Date: 20090608
  Transmission Date: 20091009
  Serious: Yes (Other)
  Sender: FDA-Public Use
  Company Number: JP-MERCK-0905USA01912

PATIENT
  Age: 67 Year
  Sex: Female
  Weight: 81 kg

DRUGS (6)
  1. HYZAAR [Suspect]
     Indication: HYPERTENSION
     Route: 048
     Dates: start: 20081104, end: 20090515
  2. AMARYL [Concomitant]
     Indication: HYPERGLYCAEMIA
     Route: 048
     Dates: start: 20080404
  3. BIOFERMIN [Concomitant]
     Route: 048
     Dates: start: 20080409
  4. ZANTAC [Concomitant]
     Route: 048
     Dates: start: 20080409
  5. CELECOX [Concomitant]
     Route: 048
     Dates: start: 20080530
  6. BLOPRESS [Concomitant]
     Route: 048
     Dates: start: 20080404, end: 20081104

REACTIONS (2)
  - BLOOD GLUCOSE INCREASED [None]
  - GLYCOSYLATED HAEMOGLOBIN INCREASED [None]
